FAERS Safety Report 20450932 (Version 1)
Quarter: 2022Q1

REPORT INFORMATION
  Report Type: Spontaneous
  Country: US (occurrence: None)
  Receive Date: 20220209
  Receipt Date: 20220209
  Transmission Date: 20220423
  Serious: Yes (Other)
  Sender: FDA-Public Use
  Company Number: None

PATIENT
  Age: 50 Year
  Sex: Female

DRUGS (2)
  1. TRULICITY [Suspect]
     Active Substance: DULAGLUTIDE
     Indication: Glucose tolerance impaired
     Route: 058
  2. C-Pap [Concomitant]

REACTIONS (3)
  - Eye pain [None]
  - Vision blurred [None]
  - Night blindness [None]

NARRATIVE: CASE EVENT DATE: 20210301
